FAERS Safety Report 14711140 (Version 1)
Quarter: 2018Q2

REPORT INFORMATION
  Report Type: Spontaneous
  Country: US (occurrence: US)
  Receive Date: 20180403
  Receipt Date: 20180403
  Transmission Date: 20180711
  Serious: Yes (Other)
  Sender: FDA-Public Use
  Company Number: US-BAYER-2018-057860

PATIENT
  Age: 70 Year
  Sex: Female

DRUGS (1)
  1. CIPRO [Suspect]
     Active Substance: CIPROFLOXACIN HYDROCHLORIDE
     Indication: RHINITIS
     Dosage: UNK

REACTIONS (3)
  - Pain [None]
  - Tendon rupture [Recovering/Resolving]
  - Ligament injury [Recovering/Resolving]
